FAERS Safety Report 5020612-4 (Version None)
Quarter: 2006Q2

REPORT INFORMATION
  Report Type: 
  Country: None (occurrence: None)
  Receive Date: 20060602
  Receipt Date: 20060522
  Transmission Date: 20061013
  Serious: Yes (Hospitalization)
  Sender: FDA-Public Use
  Company Number: 2005BI021639

PATIENT
  Age: 70 Year
  Sex: Male
  Weight: 87.0906 kg

DRUGS (7)
  1. AVONEX [Suspect]
     Indication: MULTIPLE SCLEROSIS
     Dosage: 30 UG;QW;IM
     Route: 030
     Dates: start: 19990301, end: 20030801
  2. AVONEX [Suspect]
     Indication: MULTIPLE SCLEROSIS
     Dosage: 30 UG;QW;IM
     Route: 030
     Dates: start: 20030801
  3. ASPIRIN [Concomitant]
  4. FIBER [Concomitant]
  5. ZOCOR [Concomitant]
  6. VASOTEC [Concomitant]
  7. LIPITOR [Concomitant]

REACTIONS (14)
  - ARTHRALGIA [None]
  - ASTHENIA [None]
  - BONE DISORDER [None]
  - CARDIAC DISORDER [None]
  - HYPOAESTHESIA [None]
  - JOINT INJURY [None]
  - JOINT SWELLING [None]
  - LOSS OF CONTROL OF LEGS [None]
  - MOVEMENT DISORDER [None]
  - MUSCLE SPASMS [None]
  - MUSCLE TIGHTNESS [None]
  - PARAESTHESIA [None]
  - POLLAKIURIA [None]
  - STOMACH DISCOMFORT [None]
